FAERS Safety Report 6405746-1 (Version None)
Quarter: 2009Q4

REPORT INFORMATION
  Report Type: 
  Country: None (occurrence: None)
  Receive Date: 20091019
  Receipt Date: 20091008
  Transmission Date: 20100525
  Serious: Yes (Other)
  Sender: FDA-Public Use
  Company Number: US-JNJFOC-20090901244

PATIENT
  Sex: Female
  Weight: 77.11 kg

DRUGS (8)
  1. REMICADE [Suspect]
     Indication: PSORIASIS
     Route: 042
  2. REMICADE [Suspect]
     Indication: PSORIATIC ARTHROPATHY
     Route: 042
  3. ACCUPRIL [Concomitant]
     Indication: HYPERTENSION
  4. LASIX [Concomitant]
     Indication: HYPERTENSION
  5. POTASSIUM CHLORIDE [Concomitant]
     Indication: HYPERTENSION
  6. LIPITOR [Concomitant]
     Indication: HYPERCHOLESTEROLAEMIA
  7. FOSAMAX [Concomitant]
     Indication: OSTEOPOROSIS
  8. SYNTHROID [Concomitant]
     Indication: HYPOTHYROIDISM

REACTIONS (3)
  - MOUTH ULCERATION [None]
  - NAUSEA [None]
  - TRISMUS [None]
